FAERS Safety Report 7401459-8 (Version None)
Quarter: 2011Q2

REPORT INFORMATION
  Report Type: 
  Country: None (occurrence: None)
  Receive Date: 20110407
  Receipt Date: 20110329
  Transmission Date: 20111010
  Serious: Yes (Hospitalization, Other)
  Sender: FDA-Public Use
  Company Number: US-MYLANLABS-2011S1004094

PATIENT
  Age: 40 Year
  Sex: Female
  Weight: 68.04 kg

DRUGS (6)
  1. AMNESTEEM [Suspect]
     Indication: KERATOSIS FOLLICULAR
     Dates: start: 20100422, end: 20110222
  2. CLARAVIS [Suspect]
  3. PHENTERMINE [Concomitant]
  4. AMNESTEEM [Suspect]
  5. CLARAVIS [Suspect]
  6. VALTREX [Concomitant]

REACTIONS (1)
  - DEPRESSION SUICIDAL [None]
